FAERS Safety Report 9906114 (Version 1)
Quarter: 2014Q1

REPORT INFORMATION
  Report Type: Spontaneous
  Country: US (occurrence: None)
  Receive Date: 20140212
  Receipt Date: 20140212
  Transmission Date: 20141002
  Serious: Yes (Other)
  Sender: FDA-Public Use
  Company Number: None

PATIENT
  Age: 52 Year
  Sex: Male
  Weight: 86.18 kg

DRUGS (2)
  1. ANDROGEL [Suspect]
     Indication: FATIGUE
     Dosage: 4 GEL PUMPS PER DAY ONCE DAILY APPLIED TO A SURFACE, USUALLY THE SKIN
  2. ANDROGEL [Suspect]
     Indication: BLOOD TESTOSTERONE DECREASED
     Dosage: 4 GEL PUMPS PER DAY ONCE DAILY APPLIED TO A SURFACE, USUALLY THE SKIN

REACTIONS (1)
  - Bundle branch block right [None]
